FAERS Safety Report 24657545 (Version 1)
Quarter: 2024Q4

REPORT INFORMATION
  Report Type: Spontaneous
  Country: US (occurrence: US)
  Receive Date: 20241125
  Receipt Date: 20241125
  Transmission Date: 20250115
  Serious: Yes (Other)
  Sender: AUROBINDO
  Company Number: US-AUROBINDO-AUR-APL-2024-056375

PATIENT
  Age: 50 Year
  Sex: Male

DRUGS (3)
  1. CARBOPLATIN [Suspect]
     Active Substance: CARBOPLATIN
     Indication: Cholangiocarcinoma
     Dosage: UNK
     Route: 065
     Dates: start: 201807
  2. GEMCITABINE [Suspect]
     Active Substance: GEMCITABINE
     Indication: Cholangiocarcinoma
     Dosage: UNK
     Route: 065
     Dates: start: 201807
  3. ENOXAPARIN [Concomitant]
     Active Substance: ENOXAPARIN
     Indication: Splenic vein thrombosis
     Dosage: 1 MILLIGRAM/KILOGRAM, TWO TIMES A DAY (FOR A MONTH AND LATER 1.5 MG/KG/DAY)
     Route: 065

REACTIONS (1)
  - Drug ineffective [Unknown]
